FAERS Safety Report 6249986-3 (Version None)
Quarter: 2009Q2

REPORT INFORMATION
  Report Type: 
  Country: None (occurrence: None)
  Receive Date: 20090625
  Receipt Date: 20090609
  Transmission Date: 20091009
  Serious: Yes (Death, Hospitalization)
  Sender: FDA-Public Use
  Company Number: TRP_06282_2009

PATIENT
  Age: 18 Year
  Sex: Female

DRUGS (6)
  1. AMPHOTERICIN B [Suspect]
     Indication: BRONCHOPULMONARY ASPERGILLOSIS
     Dosage: 500 MG, 10 MG/KG/DAY; INTRAVENOUS (NOT OTHERWISE SPECIFIED)
     Route: 042
  2. ABELCET [Suspect]
     Indication: BRONCHOPULMONARY ASPERGILLOSIS
     Dosage: 250 MG, 5 MG/KG/DAY, INTRAVENOUS (NOT OTHERWISE SPECIFIED)
     Route: 042
  3. POSACONAZOLE [Suspect]
     Indication: BRONCHOPULMONARY ASPERGILLOSIS
     Dosage: 200 MG 1X/6 HOURS, ORAL
     Route: 048
  4. VORICONAZOLE [Suspect]
     Indication: BRONCHOPULMONARY ASPERGILLOSIS
     Dosage: DF, FEW WEEKS
  5. MICAFUNGIN [Suspect]
     Indication: BRONCHOPULMONARY ASPERGILLOSIS
     Dosage: 100 MG/KG/DAY; INTRAVENOUS (NOT OTHERWISE SPECIFIED), (100 MG)
     Route: 042
  6. HYDROCHLOROTHIAZIDE [Suspect]
     Indication: NEPHROGENIC DIABETES INSIPIDUS
     Dosage: 25 MG QD;

REACTIONS (13)
  - APLASTIC ANAEMIA [None]
  - BLOOD BICARBONATE DECREASED [None]
  - CARDIO-RESPIRATORY ARREST [None]
  - CEREBRAL TOXOPLASMOSIS [None]
  - DISEASE COMPLICATION [None]
  - DRUG LEVEL BELOW THERAPEUTIC [None]
  - ENTEROCOCCAL INFECTION [None]
  - HYPOKALAEMIA [None]
  - LYMPHADENOPATHY [None]
  - NEPHROGENIC DIABETES INSIPIDUS [None]
  - PANCYTOPENIA [None]
  - PNEUMONIA ASPIRATION [None]
  - TOXOPLASMOSIS [None]
